FAERS Safety Report 23197361 (Version 1)
Quarter: 2023Q4

REPORT INFORMATION
  Report Type: Spontaneous
  Country: FR (occurrence: FR)
  Receive Date: 20231117
  Receipt Date: 20231117
  Transmission Date: 20240110
  Serious: Yes (Life-Threatening, Hospitalization)
  Sender: FDA-Public Use
  Company Number: FR-SUN PHARMACEUTICAL INDUSTRIES LTD-2023RR-418629

PATIENT
  Age: 44 Year
  Sex: Male

DRUGS (3)
  1. IBUPROFEN [Suspect]
     Active Substance: IBUPROFEN
     Indication: Abdominal pain
     Dosage: 6 DOSAGE FORM,  6CP PER DAY FOR 3 DAYS
     Route: 048
     Dates: start: 20230709
  2. IXPRIM [Suspect]
     Active Substance: ACETAMINOPHEN\TRAMADOL HYDROCHLORIDE
     Indication: Abdominal pain
     Dosage: 6 DOSAGE FORM, 6CP PER DAY FOR 3 DAYS
     Route: 048
     Dates: start: 20230709
  3. VOLTARENE (DICLOFENAC SODIUM) [Suspect]
     Active Substance: DICLOFENAC SODIUM
     Indication: Abdominal pain
     Dosage: 6 DOSAGE FORM, 6CP PER DAY FOR 3 DAYS
     Route: 048
     Dates: start: 20230709

REACTIONS (4)
  - Pancreatitis [Recovering/Resolving]
  - Incorrect dosage administered [Recovered/Resolved]
  - Acute kidney injury [Recovering/Resolving]
  - Hepatic cytolysis [Recovering/Resolving]

NARRATIVE: CASE EVENT DATE: 20230712
